FAERS Safety Report 23079665 (Version 6)
Quarter: 2024Q1

REPORT INFORMATION
  Report Type: Spontaneous
  Country: JP (occurrence: JP)
  Receive Date: 20231018
  Receipt Date: 20240213
  Transmission Date: 20240410
  Serious: Yes (Life-Threatening, Hospitalization, Other)
  Sender: FDA-Public Use
  Company Number: JP-shionogi-202311984_EXJ_P_1

PATIENT
  Age: 49 Year
  Sex: Female
  Weight: 70.3 kg

DRUGS (34)
  1. CYCLOPHOSPHAMIDE [Suspect]
     Active Substance: CYCLOPHOSPHAMIDE
     Indication: Breast cancer female
     Dosage: 1090 MG, EVERY 2 WEEKS, INJECTION, AS PART OF DOSE-DENSE AC THERAPY
     Route: 041
     Dates: start: 20230809, end: 20230920
  2. DOXORUBICIN [Suspect]
     Active Substance: DOXORUBICIN
     Indication: Breast cancer female
     Dosage: 109.9 MG, EVERY 2 WEEKS, INJECTION, AS PART OF DOSE-DENSE AC THERAPY
     Route: 041
     Dates: start: 20230809, end: 20230920
  3. PEGFILGRASTIM [Suspect]
     Active Substance: PEGFILGRASTIM
     Indication: Neutrophil count decreased
     Dosage: 3.6 MG, EVERY 2 WEEKS, GENETICAL RECOMBINATION
     Route: 058
     Dates: start: 20230616, end: 20230922
  4. PEGFILGRASTIM [Suspect]
     Active Substance: PEGFILGRASTIM
     Indication: Breast cancer female
  5. PEGFILGRASTIM [Suspect]
     Active Substance: PEGFILGRASTIM
     Indication: Prophylaxis
     Dosage: 3.6 MG, EVERY 2 WEEKS, GENETICAL RECOMBINATION
     Route: 058
     Dates: start: 20230616, end: 20230922
  6. PEGFILGRASTIM [Suspect]
     Active Substance: PEGFILGRASTIM
     Indication: Neutrophil count decreased
  7. SULFAMETHOXAZOLE\TRIMETHOPRIM [Suspect]
     Active Substance: SULFAMETHOXAZOLE\TRIMETHOPRIM
     Indication: Pneumocystis jirovecii pneumonia
     Dosage: 12 {DF}, ONCE A DAY
     Route: 048
     Dates: start: 20231011, end: 20231023
  8. PALONOSETRON [Concomitant]
     Active Substance: PALONOSETRON
     Indication: Prophylaxis of nausea and vomiting
     Dosage: 0.75 MG, ONCE A DAY
     Route: 041
     Dates: start: 20230809, end: 20230920
  9. DEXAMETHASONE SODIUM PHOSPHATE [Concomitant]
     Active Substance: DEXAMETHASONE PHOSPHATE\DEXAMETHASONE SODIUM PHOSPHATE
     Indication: Prophylaxis of nausea and vomiting
     Dosage: 9.9 MG, ONCE A DAY
     Route: 041
     Dates: start: 20230614, end: 20230920
  10. FOSNETUPITANT CHLORIDE HYDROCHLORIDE [Concomitant]
     Active Substance: FOSNETUPITANT CHLORIDE HYDROCHLORIDE
     Indication: Prophylaxis of nausea and vomiting
     Dosage: 235 MG, ONCE A DAY
     Route: 041
     Dates: start: 20230809, end: 20230920
  11. PACLITAXEL [Concomitant]
     Active Substance: PACLITAXEL
     Indication: Breast cancer female
     Dosage: UNK, DOSE-DENSE
     Route: 065
     Dates: start: 20230614
  12. FAMOTIDINE [Concomitant]
     Active Substance: FAMOTIDINE
     Dosage: UNK
     Route: 065
     Dates: start: 20230614
  13. FAMOTIDINE [Concomitant]
     Active Substance: FAMOTIDINE
     Route: 065
     Dates: start: 20230614
  14. CHLORPHENIRAMINE MALEATE [Concomitant]
     Active Substance: CHLORPHENIRAMINE MALEATE
     Dosage: UNK
     Route: 065
     Dates: start: 20230614
  15. LEVOFLOXACIN HEMIHYDRATE [Concomitant]
     Active Substance: LEVOFLOXACIN
     Indication: Pyrexia
     Dosage: UNK
     Route: 048
     Dates: start: 20230925, end: 20230927
  16. LEVOFLOXACIN HEMIHYDRATE [Concomitant]
     Active Substance: LEVOFLOXACIN
     Dosage: UNK
     Route: 048
     Dates: start: 20231003
  17. MAGNESIUM OXIDE [Concomitant]
     Active Substance: MAGNESIUM OXIDE
     Dosage: 990 MG, QD
     Route: 065
     Dates: start: 20230614
  18. ACETAMINOPHEN\TRAMADOL HYDROCHLORIDE [Concomitant]
     Active Substance: ACETAMINOPHEN\TRAMADOL HYDROCHLORIDE
     Dosage: 6 (DOSAGE FORM), QD
     Route: 065
     Dates: start: 20230831
  19. ETIZOLAM [Concomitant]
     Active Substance: ETIZOLAM
     Dosage: 1.5 MG, ONCE A DAY
     Route: 065
     Dates: start: 20230606
  20. DULOXETINE [Concomitant]
     Active Substance: DULOXETINE
     Dosage: 40 MG, QD
     Route: 065
     Dates: start: 20230712
  21. LOXOPROFEN [Concomitant]
     Active Substance: LOXOPROFEN
     Dosage: 60 MG, QD (START DATE: 2012)
     Route: 065
  22. REBAMIPIDE [Concomitant]
     Active Substance: REBAMIPIDE
     Dosage: 300 MG, QD (START DATE: 2012)
     Route: 065
  23. BETAHISTINE MESILATE [Concomitant]
     Active Substance: BETAHISTINE MESILATE
     Dosage: 18 MG, QD (START DATE:2012)
     Route: 065
  24. PREGABALIN [Concomitant]
     Active Substance: PREGABALIN
     Dosage: 300 MG, QD (START DATE: 2022)
     Route: 065
  25. RIVOTRIL [Concomitant]
     Active Substance: CLONAZEPAM
     Dosage: 1 MG, QD
     Route: 065
     Dates: start: 20230105
  26. Travelmin [Concomitant]
     Dosage: (START DATE: 2012)
     Route: 065
  27. Novamin [Concomitant]
     Dosage: (START DATE: 2012)
     Route: 065
  28. DEXAMETHASONE [Concomitant]
     Active Substance: DEXAMETHASONE
     Dosage: UNK
     Route: 065
     Dates: start: 20230823
  29. Az [Concomitant]
     Dosage: UNK
     Route: 065
     Dates: start: 20230823
  30. SOLU-MEDROL [Concomitant]
     Active Substance: METHYLPREDNISOLONE SODIUM SUCCINATE
     Indication: Acute respiratory distress syndrome
     Dosage: 1000 MG (PULSE), ONCE A DAY
     Route: 065
     Dates: start: 20231010, end: 20231012
  31. SOLU-MEDROL [Concomitant]
     Active Substance: METHYLPREDNISOLONE SODIUM SUCCINATE
     Indication: Pneumocystis jirovecii pneumonia
  32. MEROPENEM [Concomitant]
     Active Substance: MEROPENEM
     Indication: Infection
     Dosage: UNK
     Route: 065
     Dates: start: 20231010, end: 20231016
  33. PREDONINE [Concomitant]
     Active Substance: PREDNISOLONE
     Dosage: 50 MG, ONCE A DAY
     Route: 048
     Dates: start: 20231013, end: 20231019
  34. PREDONINE [Concomitant]
     Active Substance: PREDNISOLONE
     Dosage: 20 MG, ONCE A DAY
     Route: 048
     Dates: start: 20231020, end: 20231031

REACTIONS (6)
  - Respiratory failure [Unknown]
  - Pulmonary toxicity [Recovering/Resolving]
  - Pneumocystis jirovecii pneumonia [Recovering/Resolving]
  - Dyspnoea exertional [Unknown]
  - Pyrexia [Unknown]
  - Drug eruption [Unknown]

NARRATIVE: CASE EVENT DATE: 20230925
